FAERS Safety Report 26198598 (Version 1)
Quarter: 2025Q4

REPORT INFORMATION
  Report Type: Spontaneous
  Country: EU (occurrence: EU)
  Receive Date: 20251224
  Receipt Date: 20251224
  Transmission Date: 20260118
  Serious: Yes (Other)
  Sender: REGENERON
  Company Number: EU-REGENERON PHARMACEUTICALS, INC.-2025-118388

PATIENT
  Sex: Female

DRUGS (1)
  1. LIBTAYO [Suspect]
     Active Substance: CEMIPLIMAB-RWLC
     Indication: Cervix carcinoma
     Dosage: 350 MG, Q3W
     Route: 042

REACTIONS (7)
  - Hepatotoxicity [Unknown]
  - Immune-mediated thyroiditis [Unknown]
  - Infusion related reaction [Unknown]
  - Diarrhoea [Unknown]
  - Musculoskeletal pain [Unknown]
  - Anaemia [Unknown]
  - Skin toxicity [Unknown]
